FAERS Safety Report 6179163-6 (Version None)
Quarter: 2009Q2

REPORT INFORMATION
  Report Type: 
  Country: None (occurrence: None)
  Receive Date: 20090505
  Receipt Date: 20090429
  Transmission Date: 20091009
  Serious: Yes (Other)
  Sender: FDA-Public Use
  Company Number: US-BAYER-200831974NA

PATIENT
  Age: 18 Year
  Sex: Female
  Weight: 67 kg

DRUGS (1)
  1. MIRENA [Suspect]
     Indication: CONTRACEPTION
     Dosage: DAILY CONTINUOUS
     Route: 015
     Dates: start: 20080724

REACTIONS (3)
  - ANTEPARTUM HAEMORRHAGE [None]
  - NO ADVERSE EVENT [None]
  - PROCEDURAL PAIN [None]
